FAERS Safety Report 9476520 (Version 1)
Quarter: 2013Q3

REPORT INFORMATION
  Report Type: Spontaneous
  Country: JP (occurrence: JP)
  Receive Date: 20130826
  Receipt Date: 20130826
  Transmission Date: 20140515
  Serious: Yes (Death, Other)
  Sender: FDA-Public Use
  Company Number: JP-B.I. PHARMACEUTICALS,INC./RIDGEFIELD-2013-BI-25584NB

PATIENT
  Sex: 0

DRUGS (1)
  1. BI-SIFROL [Suspect]
     Route: 065

REACTIONS (2)
  - Pneumonia [Fatal]
  - Nephrotic syndrome [Unknown]
